FAERS Safety Report 4783113-4 (Version None)
Quarter: 2005Q3

REPORT INFORMATION
  Report Type: 
  Country: None (occurrence: None)
  Receive Date: 20050914
  Receipt Date: 20040907
  Transmission Date: 20060218
  Serious: Yes (Disabling, Other)
  Sender: FDA-Public Use
  Company Number: 163-20785-04030291

PATIENT
  Age: 83 Year
  Sex: Male
  Weight: 56.246 kg

DRUGS (1)
  1. THALOMID [Suspect]
     Indication: RENAL CELL CARCINOMA STAGE UNSPECIFIED
     Dosage: 200 MG/ML, DAILY, ORAL
     Route: 048
     Dates: start: 20030630, end: 20040401

REACTIONS (7)
  - ABASIA [None]
  - ASTHENIA [None]
  - HYPOAESTHESIA [None]
  - MOBILITY DECREASED [None]
  - NERVE INJURY [None]
  - NEUROPATHY [None]
  - PAIN [None]
